FAERS Safety Report 11371171 (Version 1)
Quarter: 2015Q3

REPORT INFORMATION
  Report Type: Spontaneous
  Country: US (occurrence: US)
  Receive Date: 20150812
  Receipt Date: 20150812
  Transmission Date: 20151125
  Serious: Yes (Death)
  Sender: FDA-Public Use
  Company Number: US-PFIZER INC-2015256115

PATIENT
  Age: 68 Year
  Sex: Male
  Weight: 68 kg

DRUGS (1)
  1. SUTENT [Suspect]
     Active Substance: SUNITINIB MALATE
     Indication: RENAL CANCER
     Dosage: 50 MG, CYCLIC (50 MG ONCE A DAY FOR 14 DAYS ON AND 7 DAYS OFF)

REACTIONS (2)
  - Disease progression [Fatal]
  - Renal cancer [Fatal]

NARRATIVE: CASE EVENT DATE: 20150718
